FAERS Safety Report 9820758 (Version 1)
Quarter: 2013Q4

REPORT INFORMATION
  Report Type: Spontaneous
  Country: US (occurrence: None)
  Receive Date: 20131025
  Receipt Date: 20131025
  Transmission Date: 20140711
  Serious: No
  Sender: FDA-Public Use
  Company Number: AP356-00114-SPO-US

PATIENT
  Age: 44 Year
  Sex: Female

DRUGS (2)
  1. BELVIQ [Suspect]
     Indication: WEIGHT DECREASED
     Route: 048
     Dates: start: 201306, end: 201306
  2. NASAL SPRAY (ALLERGY MEDICATION) [Concomitant]

REACTIONS (1)
  - Nausea [None]
